FAERS Safety Report 5363543-2 (Version None)
Quarter: 2007Q2

REPORT INFORMATION
  Report Type: 
  Country: None (occurrence: None)
  Receive Date: 20070618
  Receipt Date: 20070618
  Transmission Date: 20071010
  Serious: Yes (Hospitalization, Other)
  Sender: FDA-Public Use
  Company Number: None

PATIENT
  Age: 27 Year
  Sex: Female
  Weight: 75 kg

DRUGS (1)
  1. CLOZAPINE [Suspect]
     Indication: SCHIZOPHRENIA
     Dosage: 300MG QHS PO
     Route: 048
     Dates: start: 20070520, end: 20070605

REACTIONS (2)
  - BODY TEMPERATURE INCREASED [None]
  - PULMONARY EMBOLISM [None]
